FAERS Safety Report 20249103 (Version 1)
Quarter: 2021Q4

REPORT INFORMATION
  Report Type: Report from Study
  Country: MY (occurrence: MY)
  Receive Date: 20211229
  Receipt Date: 20211229
  Transmission Date: 20220303
  Serious: Yes (Death, Other)
  Sender: FDA-Public Use
  Company Number: MY-TAKEDA-2021TUS000657

PATIENT
  Sex: Female

DRUGS (1)
  1. IXAZOMIB [Suspect]
     Active Substance: IXAZOMIB
     Indication: Plasma cell myeloma
     Dosage: 4 MILLIGRAM
     Route: 048
     Dates: start: 20200806, end: 20201102

REACTIONS (3)
  - Death [Fatal]
  - Cell marker increased [Unknown]
  - Drug ineffective [Unknown]
